FAERS Safety Report 9454340 (Version 1)
Quarter: 2013Q3

REPORT INFORMATION
  Report Type: Spontaneous
  Country: US (occurrence: None)
  Receive Date: 20130809
  Receipt Date: 20130809
  Transmission Date: 20140515
  Serious: Yes (Other)
  Sender: FDA-Public Use
  Company Number: None

PATIENT
  Sex: Female

DRUGS (2)
  1. ACYCLOVIR [Suspect]
     Indication: HERPES VIRUS INFECTION
     Dosage: 400MG BID PO
     Route: 048
     Dates: start: 201112, end: 20130411
  2. VALACYCLOVIR [Suspect]
     Dosage: 500 MG BID PO
     Route: 048
     Dates: start: 20130411, end: 20130525

REACTIONS (1)
  - Drug ineffective [None]
